FAERS Safety Report 12716430 (Version 2)
Quarter: 2016Q4

REPORT INFORMATION
  Report Type: Spontaneous
  Country: US (occurrence: US)
  Receive Date: 20160906
  Receipt Date: 20161011
  Transmission Date: 20170207
  Serious: Yes (Other)
  Sender: FDA-Public Use
  Company Number: US-ASTELLAS-2016US033443

PATIENT
  Age: 49 Year
  Sex: Male

DRUGS (4)
  1. MYRBETRIQ [Suspect]
     Active Substance: MIRABEGRON
     Indication: HYPOTONIC URINARY BLADDER
  2. MYRBETRIQ [Suspect]
     Active Substance: MIRABEGRON
     Indication: BACK INJURY
     Dosage: UNK, UNKNOWN FREQ.
     Route: 065
     Dates: start: 2011
  3. DIAZEPAM. [Concomitant]
     Active Substance: DIAZEPAM
     Indication: MUSCLE RELAXANT THERAPY
     Dosage: UNK UNK, UNKNOWN FREQ.
     Route: 065
  4. TESTOSTERONE. [Concomitant]
     Active Substance: TESTOSTERONE
     Indication: ANDROGEN DEFICIENCY
     Dosage: UNK UNK, UNKNOWN FREQ.
     Route: 065

REACTIONS (4)
  - Neoplasm malignant [Unknown]
  - Sunburn [Unknown]
  - Off label use [Unknown]
  - Road traffic accident [Unknown]

NARRATIVE: CASE EVENT DATE: 20160826
